FAERS Safety Report 11895616 (Version 15)
Quarter: 2018Q4

REPORT INFORMATION
  Report Type: Spontaneous
  Country: US (occurrence: US)
  Receive Date: 20160107
  Receipt Date: 20181023
  Transmission Date: 20190204
  Serious: Yes (Hospitalization, Disabling, Other)
  Sender: FDA-Public Use
  Company Number: US-BIOGEN-2015BI109636

PATIENT
  Age: 56 Year
  Sex: Female

DRUGS (8)
  1. AVONEX [Suspect]
     Active Substance: INTERFERON BETA-1A
     Route: 030
     Dates: end: 20150820
  2. AVONEX [Suspect]
     Active Substance: INTERFERON BETA-1A
     Route: 030
     Dates: start: 20150901, end: 201510
  3. AVONEX [Suspect]
     Active Substance: INTERFERON BETA-1A
     Route: 065
  4. AVONEX [Suspect]
     Active Substance: INTERFERON BETA-1A
     Indication: MULTIPLE SCLEROSIS
     Route: 030
     Dates: start: 20130301
  5. AVONEX [Suspect]
     Active Substance: INTERFERON BETA-1A
     Route: 030
     Dates: start: 201406
  6. AVONEX [Suspect]
     Active Substance: INTERFERON BETA-1A
     Route: 030
     Dates: end: 20150628
  7. AVONEX [Suspect]
     Active Substance: INTERFERON BETA-1A
     Route: 030
     Dates: end: 20171201
  8. KLONOPIN [Concomitant]
     Active Substance: CLONAZEPAM
     Indication: PRODUCT USED FOR UNKNOWN INDICATION
     Route: 065

REACTIONS (51)
  - Concussion [Recovered/Resolved]
  - Spinal fracture [Unknown]
  - Feeding disorder [Not Recovered/Not Resolved]
  - Malaise [Not Recovered/Not Resolved]
  - Fatigue [Not Recovered/Not Resolved]
  - Facial bones fracture [Not Recovered/Not Resolved]
  - Upper limb fracture [Not Recovered/Not Resolved]
  - Gait inability [Not Recovered/Not Resolved]
  - Underweight [Not Recovered/Not Resolved]
  - Crying [Unknown]
  - Agitation [Not Recovered/Not Resolved]
  - Asthenia [Not Recovered/Not Resolved]
  - Loss of consciousness [Recovered/Resolved]
  - Dehydration [Unknown]
  - Scoliosis [Not Recovered/Not Resolved]
  - Musculoskeletal pain [Unknown]
  - Multiple sclerosis relapse [Not Recovered/Not Resolved]
  - Victim of crime [Recovered/Resolved]
  - Appendicitis perforated [Recovered/Resolved]
  - Seizure [Unknown]
  - Multiple sclerosis [Not Recovered/Not Resolved]
  - Dysstasia [Not Recovered/Not Resolved]
  - Nasopharyngitis [Not Recovered/Not Resolved]
  - Dyspnoea [Not Recovered/Not Resolved]
  - Brain injury [Unknown]
  - Suicidal ideation [Recovered/Resolved]
  - Pneumonia [Unknown]
  - Mental disorder [Unknown]
  - Cognitive disorder [Not Recovered/Not Resolved]
  - Arthropathy [Unknown]
  - Feeling abnormal [Not Recovered/Not Resolved]
  - Dizziness [Not Recovered/Not Resolved]
  - Rib fracture [Recovered/Resolved]
  - Road traffic accident [Recovered/Resolved]
  - Back injury [Not Recovered/Not Resolved]
  - Coma [Recovered/Resolved]
  - Fear [Unknown]
  - Somnolence [Recovered/Resolved]
  - Frustration tolerance decreased [Unknown]
  - Accident [Recovered/Resolved]
  - Depressed mood [Not Recovered/Not Resolved]
  - Pain in extremity [Unknown]
  - Apparent death [Recovered/Resolved]
  - Mobility decreased [Not Recovered/Not Resolved]
  - Fall [Recovered/Resolved]
  - Drug withdrawal syndrome [Unknown]
  - Balance disorder [Not Recovered/Not Resolved]
  - Feeling of body temperature change [Not Recovered/Not Resolved]
  - Head injury [Recovered/Resolved]
  - Anxiety [Not Recovered/Not Resolved]
  - Insomnia [Not Recovered/Not Resolved]

NARRATIVE: CASE EVENT DATE: 20130301
